FAERS Safety Report 9295392 (Version 3)
Quarter: 2014Q1

REPORT INFORMATION
  Report Type: Spontaneous
  Country: US (occurrence: US)
  Receive Date: 20130517
  Receipt Date: 20140214
  Transmission Date: 20141002
  Serious: Yes (Other)
  Sender: FDA-Public Use
  Company Number: US-AMGEN-USASP2013034320

PATIENT
  Age: 60 Year
  Sex: Female
  Weight: 92.06 kg

DRUGS (4)
  1. ENBREL [Suspect]
     Indication: RHEUMATOID ARTHRITIS
     Dosage: 50 MG, QWK
     Route: 058
     Dates: start: 2011
  2. ENBREL [Suspect]
     Dosage: UNK
     Route: 058
  3. PREDNISONE [Concomitant]
     Dosage: 5 MG, QD
     Dates: start: 2010
  4. METHOTREXATE [Concomitant]
     Dosage: 8 TABS (2.5MG), WEEKLY
     Route: 048
     Dates: start: 2011

REACTIONS (11)
  - Wrist fracture [Not Recovered/Not Resolved]
  - Upper limb fracture [Recovered/Resolved]
  - Fall [Recovered/Resolved]
  - Rotator cuff syndrome [Recovered/Resolved]
  - Tooth abscess [Not Recovered/Not Resolved]
  - Gingival disorder [Not Recovered/Not Resolved]
  - Local swelling [Recovered/Resolved]
  - Weight decreased [Not Recovered/Not Resolved]
  - Bone density decreased [Not Recovered/Not Resolved]
  - Nausea [Not Recovered/Not Resolved]
  - Grip strength decreased [Not Recovered/Not Resolved]
